FAERS Safety Report 24001555 (Version 1)
Quarter: 2024Q2

REPORT INFORMATION
  Report Type: Report from Study
  Country: US (occurrence: US)
  Receive Date: 20240621
  Receipt Date: 20240621
  Transmission Date: 20240716
  Serious: No
  Sender: FDA-Public Use
  Company Number: US-APELLIS-2024-APL-0000222

PATIENT

DRUGS (1)
  1. PEGCETACOPLAN [Suspect]
     Active Substance: PEGCETACOPLAN
     Dosage: 1080MG/20ML TWICE A WEEK
     Route: 058
     Dates: start: 20240419

REACTIONS (1)
  - Oesophageal spasm [Unknown]

NARRATIVE: CASE EVENT DATE: 20240521
